FAERS Safety Report 6895689-1 (Version None)
Quarter: 2010Q3

REPORT INFORMATION
  Report Type: 
  Country: None (occurrence: None)
  Receive Date: 20100802
  Receipt Date: 20100722
  Transmission Date: 20110219
  Serious: Yes (Other)
  Sender: FDA-Public Use
  Company Number: FR-ASTRAZENECA-2010SE34671

PATIENT
  Age: 79 Year
  Sex: Female

DRUGS (5)
  1. CRESTOR [Suspect]
     Indication: VERTEBRAL ARTERY STENOSIS
     Route: 048
     Dates: start: 20100607, end: 20100610
  2. PREVISCAN [Interacting]
     Indication: CEREBROVASCULAR ACCIDENT
     Route: 048
     Dates: start: 20080101, end: 20100610
  3. XELODA [Interacting]
     Indication: NEOPLASM
     Route: 048
     Dates: start: 20100601, end: 20100607
  4. KERLONE [Concomitant]
  5. KARDEGIC [Concomitant]

REACTIONS (2)
  - DRUG INTERACTION [None]
  - INTERNATIONAL NORMALISED RATIO INCREASED [None]
